FAERS Safety Report 5223644-6 (Version None)
Quarter: 2007Q1

REPORT INFORMATION
  Report Type: 
  Country: None (occurrence: None)
  Receive Date: 20070124
  Receipt Date: 20070123
  Transmission Date: 20070707
  Serious: Yes (Hospitalization)
  Sender: FDA-Public Use
  Company Number: FRWYE300623JAN07

PATIENT
  Age: 10 Year
  Sex: Female

DRUGS (2)
  1. ADVIL [Suspect]
     Indication: JOINT SPRAIN
     Dosage: DAILY - AT REQUEST
     Route: 048
     Dates: start: 20061115, end: 20061220
  2. ACETAMINOPHEN [Concomitant]

REACTIONS (1)
  - OPTIC NEURITIS RETROBULBAR [None]
